FAERS Safety Report 4757987-7 (Version None)
Quarter: 2005Q3

REPORT INFORMATION
  Report Type: 
  Country: None (occurrence: None)
  Receive Date: 20050826
  Receipt Date: 20050503
  Transmission Date: 20060218
  Serious: Yes (Other)
  Sender: FDA-Public Use
  Company Number: CIP05001039

PATIENT
  Age: 48 Year
  Sex: Male

DRUGS (3)
  1. ASACOL [Suspect]
     Indication: COLITIS ULCERATIVE
     Dosage: 1200 MG THREE TIMES DAILY, ORAL
     Route: 048
     Dates: start: 19950101
  2. OTHER ANTIHYPERTENSIVES [Concomitant]
  3. CHOLESTEROL - AND TRIGLYCERIDE REDUCERS [Concomitant]

REACTIONS (1)
  - NEPHROTIC SYNDROME [None]
